FAERS Safety Report 8349175-2 (Version None)
Quarter: 2012Q2

REPORT INFORMATION
  Report Type: 
  Country: None (occurrence: None)
  Receive Date: 20120510
  Receipt Date: 20120427
  Transmission Date: 20120825
  Serious: Yes (Hospitalization)
  Sender: FDA-Public Use
  Company Number: IT-BRISTOL-MYERS SQUIBB COMPANY-16541427

PATIENT
  Age: 86 Year
  Sex: Male

DRUGS (6)
  1. ASPIRIN [Concomitant]
  2. RAMIPRIL [Suspect]
     Indication: CONGESTIVE CARDIOMYOPATHY
     Dosage: DRUG INTERRUPTED ON 15MAR2012
     Route: 048
     Dates: start: 20120101
  3. LASIX [Suspect]
     Indication: CONGESTIVE CARDIOMYOPATHY
     Route: 048
     Dates: start: 20120101, end: 20120315
  4. ALLOPURINOL [Concomitant]
     Indication: CONGESTIVE CARDIOMYOPATHY
     Route: 048
     Dates: start: 20120101, end: 20120315
  5. COUMADIN [Suspect]
     Indication: CONGESTIVE CARDIOMYOPATHY
     Dosage: DRUG INTERRUPT ON 15MAR2012
     Route: 048
     Dates: start: 20120101
  6. BISOPROLOL FUMARATE [Suspect]
     Indication: CONGESTIVE CARDIOMYOPATHY
     Dosage: DRUG INTERRUPTED ON 15MAR2012
     Route: 048
     Dates: start: 20120101

REACTIONS (3)
  - HYPOTENSION [None]
  - INTERNATIONAL NORMALISED RATIO INCREASED [None]
  - DYSPNOEA [None]
